FAERS Safety Report 4597108-7 (Version None)
Quarter: 2005Q1

REPORT INFORMATION
  Report Type: 
  Country: None (occurrence: None)
  Receive Date: 20050301
  Receipt Date: 20050216
  Transmission Date: 20050727
  Serious: Yes (Death)
  Sender: FDA-Public Use
  Company Number: 2005036028

PATIENT
  Age: 63 Year
  Sex: Male

DRUGS (2)
  1. UNASYN [Suspect]
     Indication: INFECTION PROPHYLAXIS
     Dosage: INTRAVENOUS
     Route: 042
  2. SULBACTAM SODIUM (SULBACTAM) [Suspect]
     Indication: INFECTION PROPHYLAXIS

REACTIONS (3)
  - COLITIS [None]
  - DIARRHOEA [None]
  - PNEUMONIA [None]
